FAERS Safety Report 9468525 (Version 1)
Quarter: 2013Q3

REPORT INFORMATION
  Report Type: Spontaneous
  Country: US (occurrence: US)
  Receive Date: 20130821
  Receipt Date: 20130821
  Transmission Date: 20140515
  Serious: Yes (Other)
  Sender: FDA-Public Use
  Company Number: US-PFIZER INC-2013238751

PATIENT
  Sex: Male

DRUGS (2)
  1. VIAGRA [Suspect]
     Dosage: UNK (HALF OF 100MG)
     Route: 048
  2. VIAGRA [Suspect]
     Dosage: 100 MG, 3X/DAY
     Route: 048

REACTIONS (2)
  - Haematospermia [Unknown]
  - Intentional overdose [Unknown]
